FAERS Safety Report 8011377 (Version 7)
Quarter: 2014Q2

REPORT INFORMATION
  Report Type: Spontaneous
  Country: US (occurrence: US)
  Receive Date: 20110627
  Receipt Date: 20140507
  Transmission Date: 20141212
  Serious: Yes (Hospitalization, Other)
  Sender: FDA-Public Use
  Company Number: US-ASTRAZENECA-2011SE37131

PATIENT
  Age: 42 Year
  Sex: Female
  Weight: 61.2 kg

DRUGS (14)
  1. SEROQUEL [Suspect]
     Indication: ANXIETY
     Dosage: 200 MG AT NIGHT AND 25 MG 4 TIMES A DAY
     Route: 048
     Dates: start: 2006
  2. SEROQUEL [Suspect]
     Indication: BIPOLAR I DISORDER
     Dosage: 200 MG AT NIGHT AND 25 MG 4 TIMES A DAY
     Route: 048
     Dates: start: 2006
  3. SEROQUEL [Suspect]
     Indication: ANXIETY
     Route: 048
     Dates: start: 2009, end: 20131031
  4. SEROQUEL [Suspect]
     Indication: BIPOLAR I DISORDER
     Route: 048
     Dates: start: 2009, end: 20131031
  5. SEROQUEL [Suspect]
     Indication: ANXIETY
     Route: 048
     Dates: start: 2011
  6. SEROQUEL [Suspect]
     Indication: BIPOLAR I DISORDER
     Route: 048
     Dates: start: 2011
  7. ZESTRIL [Concomitant]
     Route: 048
  8. ZOLOFT [Concomitant]
     Indication: MOOD ALTERED
     Route: 048
  9. FIORICET [Concomitant]
     Indication: HEADACHE
     Dosage: EVERY 4 TO 6 HRS AS REQUIRED
     Route: 048
  10. FIORICET [Concomitant]
     Indication: MIGRAINE
     Dosage: EVERY 4 TO 6 HRS AS REQUIRED
     Route: 048
  11. ALPRAZOLAM [Concomitant]
     Dosage: FOUR TIMES A DAY
  12. RESTORIL [Concomitant]
     Indication: INSOMNIA
     Route: 048
  13. GENERIC XANAX [Concomitant]
     Route: 048
  14. PHENERGAN [Concomitant]
     Indication: NAUSEA
     Route: 048

REACTIONS (12)
  - Mental disorder [Unknown]
  - Nasopharyngitis [Unknown]
  - Histrionic personality disorder [Unknown]
  - Mania [Recovered/Resolved]
  - Insomnia [Not Recovered/Not Resolved]
  - Depression [Not Recovered/Not Resolved]
  - Nausea [Unknown]
  - Balance disorder [Not Recovered/Not Resolved]
  - Migraine [Unknown]
  - Fatigue [Not Recovered/Not Resolved]
  - Drug dose omission [Not Recovered/Not Resolved]
  - Intentional product misuse [Unknown]
